FAERS Safety Report 20020346 (Version 1)
Quarter: 2021Q4

REPORT INFORMATION
  Report Type: Spontaneous
  Country: CA (occurrence: CA)
  Receive Date: 20211101
  Receipt Date: 20211101
  Transmission Date: 20220303
  Serious: Yes (Other)
  Sender: FDA-Public Use
  Company Number: CA-SAOL THERAPEUTICS-2021SAO00362

PATIENT
  Age: 30 Year

DRUGS (1)
  1. VARIZIG [Suspect]
     Active Substance: HUMAN VARICELLA-ZOSTER IMMUNE GLOBULIN
     Dosage: 625 IU
     Route: 042

REACTIONS (4)
  - Chest discomfort [Recovered/Resolved]
  - Dizziness [Recovered/Resolved]
  - Flushing [Recovered/Resolved]
  - Hyperhidrosis [Recovered/Resolved]
